FAERS Safety Report 5282835-9 (Version None)
Quarter: 2007Q1

REPORT INFORMATION
  Report Type: 
  Country: None (occurrence: None)
  Receive Date: 20070326
  Receipt Date: 20070316
  Transmission Date: 20070707
  Serious: Yes (Other)
  Sender: FDA-Public Use
  Company Number: PHBS2007IT04409

PATIENT
  Sex: Female

DRUGS (1)
  1. TIMOLOL MALEATE [Suspect]
     Dosage: 0.5%, ONCE/SINGLE OCULAR
     Route: 031

REACTIONS (4)
  - CORNEAL ABRASION [None]
  - CORNEAL DISORDER [None]
  - EYE DISORDER [None]
  - PAIN [None]
